FAERS Safety Report 17945554 (Version 2)
Quarter: 2020Q3

REPORT INFORMATION
  Report Type: Report from Study
  Country: FR (occurrence: FR)
  Receive Date: 20200625
  Receipt Date: 20200701
  Transmission Date: 20201103
  Serious: Yes (Hospitalization)
  Sender: FDA-Public Use
  Company Number: FR-ROCHE-2627412

PATIENT
  Age: 48 Year
  Sex: Female
  Weight: 77 kg

DRUGS (6)
  1. PLACEBO [Suspect]
     Active Substance: UNSPECIFIED INGREDIENT
     Indication: HER2 POSITIVE BREAST CANCER
     Dosage: LAST DOSE PRIOR TO SAE: 13/JUN/2013
     Route: 042
     Dates: start: 20120614
  2. CYCLOPHOSPHAMIDE. [Suspect]
     Active Substance: CYCLOPHOSPHAMIDE
     Indication: HER2 POSITIVE BREAST CANCER
     Dosage: LAST DOSE PRIOR TO SAE ONSET: 24/MAY/2012
     Route: 042
     Dates: start: 20120412
  3. DOCETAXEL. [Suspect]
     Active Substance: DOCETAXEL
     Indication: HER2 POSITIVE BREAST CANCER
     Dosage: LAST DOSE PRIOR TO SAE ONSET: 26/JUL/2012
     Route: 042
     Dates: start: 20120615
  4. EPIRUBICINE [Suspect]
     Active Substance: EPIRUBICIN
     Indication: HER2 POSITIVE BREAST CANCER
     Dosage: LAST DOSE PRIOR TO SAE ONSET: 24/MAY/2012
     Route: 042
     Dates: start: 20120412
  5. TRASTUZUMAB. [Suspect]
     Active Substance: TRASTUZUMAB
     Indication: HER2 POSITIVE BREAST CANCER
     Dosage: LAST DOSE PRIOR TO SAE: 13/JUN/2013
     Route: 042
     Dates: start: 20120614
  6. 5?FLUOROURACIL [FLUOROURACIL] [Suspect]
     Active Substance: FLUOROURACIL
     Indication: HER2 POSITIVE BREAST CANCER
     Dosage: LAST DOSE PRIOR TO SAE ONSET: 24/MAY/2012
     Route: 042
     Dates: start: 20120412

REACTIONS (1)
  - Myocardial infarction [Recovered/Resolved]

NARRATIVE: CASE EVENT DATE: 201911
